FAERS Safety Report 9257645 (Version 1)
Quarter: 2013Q2

REPORT INFORMATION
  Report Type: Spontaneous
  Country: US (occurrence: US)
  Receive Date: 20130426
  Receipt Date: 20130426
  Transmission Date: 20140414
  Serious: Yes (Other)
  Sender: FDA-Public Use
  Company Number: US-PFIZER INC-2013128202

PATIENT
  Sex: Female

DRUGS (4)
  1. LYRICA [Suspect]
     Dosage: UNK
  2. ZOLOFT [Suspect]
     Dosage: UNK
  3. XANAX [Suspect]
     Dosage: UNK
  4. AMBIEN [Suspect]
     Dosage: UNK

REACTIONS (2)
  - Suicidal ideation [Unknown]
  - Pain [Unknown]
